FAERS Safety Report 20389809 (Version 2)
Quarter: 2022Q2

REPORT INFORMATION
  Report Type: Spontaneous
  Country: US (occurrence: None)
  Receive Date: 20220128
  Receipt Date: 20220428
  Transmission Date: 20220721
  Serious: No
  Sender: FDA-Public Use
  Company Number: US-Ultragenyx Pharmaceutical Inc.-US-UGNX-21-00434

PATIENT
  Age: 13 Year
  Sex: Male
  Weight: 40.8 kg

DRUGS (6)
  1. DOJOLVI [Suspect]
     Active Substance: TRIHEPTANOIN
     Indication: Very long-chain acyl-coenzyme A dehydrogenase deficiency
     Dosage: 11% % DAILY CALORIE INTAKE; WITH MEAL OR SNACK MIXED WITH SKIM MILK AT BREAKFAST, LUNCH, DINNER AND
     Route: 048
     Dates: start: 202108
  2. DOJOLVI [Suspect]
     Active Substance: TRIHEPTANOIN
     Dosage: WITH MEAL OR SNACK MIXED WITH SKIM MILK AT BREAKFAST, LUNCH, DINNER AND BEFORE BED
     Route: 048
     Dates: start: 202108
  3. DOJOLVI [Suspect]
     Active Substance: TRIHEPTANOIN
     Dosage: WITH MEAL OR SNACK MIXED WITH SKIM MILK AT BREAKFAST, LUNCH, DINNER AND BEFORE BED
     Route: 048
     Dates: start: 202108
  4. DOJOLVI [Suspect]
     Active Substance: TRIHEPTANOIN
     Dosage: 21% OF THE PATIENT^S TOTAL PRESCRIBED DCL
     Route: 048
     Dates: start: 20211023
  5. DOJOLVI [Suspect]
     Active Substance: TRIHEPTANOIN
     Dosage: 11% OF THE PATIENT^S TOTAL PRESCRIBED DCI
     Route: 048
     Dates: start: 20211119, end: 20220129
  6. IRON [Concomitant]
     Active Substance: IRON
     Indication: Product used for unknown indication

REACTIONS (3)
  - Blood triglycerides increased [Recovered/Resolved]
  - Blood cholesterol increased [Recovered/Resolved]
  - Blood triglycerides increased [Unknown]

NARRATIVE: CASE EVENT DATE: 20211102
